FAERS Safety Report 23341400 (Version 1)
Quarter: 2023Q4

REPORT INFORMATION
  Report Type: Spontaneous
  Country: GR (occurrence: GR)
  Receive Date: 20231227
  Receipt Date: 20231227
  Transmission Date: 20240109
  Serious: Yes (Other)
  Sender: FDA-Public Use
  Company Number: None

PATIENT
  Age: 77 Year
  Sex: Female

DRUGS (5)
  1. IMBRUVICA [Suspect]
     Active Substance: IBRUTINIB
     Indication: Mantle cell lymphoma recurrent
     Route: 048
     Dates: start: 20201008, end: 20230309
  2. ATORVASTATIN CALCIUM [Concomitant]
     Active Substance: ATORVASTATIN CALCIUM
     Indication: Hypercholesterolaemia
     Route: 048
  3. METOPROLOL [Concomitant]
     Active Substance: METOPROLOL
     Indication: Hypertension
     Route: 048
  4. LEVOTHYROXINE [Concomitant]
     Active Substance: LEVOTHYROXINE
     Indication: Hypothyroidism
     Route: 048
  5. XARELTO [Concomitant]
     Active Substance: RIVAROXABAN
     Indication: Atrial fibrillation
     Route: 048

REACTIONS (10)
  - Inflammation [Recovering/Resolving]
  - Atrial fibrillation [Recovered/Resolved]
  - Alopecia [Recovering/Resolving]
  - Hypertension [Recovered/Resolved]
  - Erythema [Recovering/Resolving]
  - Onycholysis [Recovering/Resolving]
  - Paronychia [Recovering/Resolving]
  - Eczema [Recovering/Resolving]
  - Nodule [Recovering/Resolving]
  - Onychoclasis [Recovering/Resolving]

NARRATIVE: CASE EVENT DATE: 20210101
